FAERS Safety Report 7424052-X (Version None)
Quarter: 2011Q2

REPORT INFORMATION
  Report Type: 
  Country: None (occurrence: None)
  Receive Date: 20110419
  Receipt Date: 20101213
  Transmission Date: 20111010
  Serious: Yes (Hospitalization)
  Sender: FDA-Public Use
  Company Number: US-BAYER-201034905NA

PATIENT
  Sex: Female
  Weight: 79.545 kg

DRUGS (8)
  1. PROMETHAZINE [Concomitant]
  2. YAZ [Suspect]
     Dosage: UNK
     Route: 048
     Dates: start: 20090801, end: 20100115
  3. YASMIN [Suspect]
     Indication: MENSTRUAL DISORDER
     Route: 048
  4. DOXYCYCLINE HYCLATE [Concomitant]
  5. YAZ [Suspect]
     Route: 048
     Dates: start: 20080501, end: 20080801
  6. YAZ [Suspect]
     Route: 048
     Dates: start: 20090301
  7. METRONIDAZOLE [Concomitant]
  8. FLUCONAZOLE [Concomitant]

REACTIONS (3)
  - CHOLECYSTITIS CHRONIC [None]
  - PROCEDURAL PAIN [None]
  - ABDOMINAL PAIN UPPER [None]
